FAERS Safety Report 15542116 (Version 1)
Quarter: 2018Q4

REPORT INFORMATION
  Report Type: Spontaneous
  Country: US (occurrence: US)
  Receive Date: 20181017
  Receipt Date: 20181017
  Transmission Date: 20190205
  Serious: Yes (Hospitalization)
  Sender: FDA-Public Use
  Company Number: None

PATIENT
  Age: 81 Year
  Sex: Male

DRUGS (17)
  1. VITAMIN B12 [Concomitant]
     Active Substance: CYANOCOBALAMIN
  2. NAPROXEN. [Concomitant]
     Active Substance: NAPROXEN
  3. VENTOLIN [Concomitant]
     Active Substance: ALBUTEROL SULFATE
  4. LORATADINE. [Concomitant]
     Active Substance: LORATADINE
  5. NIACIN. [Concomitant]
     Active Substance: NIACIN
  6. ASPIRIN. [Concomitant]
     Active Substance: ASPIRIN
  7. TAMSULOSIN [Concomitant]
     Active Substance: TAMSULOSIN
  8. CETIRIZINE [Concomitant]
     Active Substance: CETIRIZINE HYDROCHLORIDE
  9. COQ10 [Concomitant]
     Active Substance: UBIDECARENONE
  10. MULTIVITAMIN [Concomitant]
     Active Substance: VITAMINS
  11. ATORVASTATIN [Concomitant]
     Active Substance: ATORVASTATIN
  12. FLOMAX [Concomitant]
     Active Substance: TAMSULOSIN HYDROCHLORIDE
  13. ZYTIGA [Suspect]
     Active Substance: ABIRATERONE ACETATE
     Indication: PROSTATE CANCER
     Dosage: ?          OTHER FREQUENCY:ONCE DAILY;?
     Route: 048
     Dates: start: 20130920
  14. PROLIA [Concomitant]
     Active Substance: DENOSUMAB
  15. GILIPIZIDE XL [Concomitant]
  16. PREDNISONE. [Concomitant]
     Active Substance: PREDNISONE
  17. VITAMIN E [Concomitant]
     Active Substance: .ALPHA.-TOCOPHEROL

REACTIONS (1)
  - Surgery [None]

NARRATIVE: CASE EVENT DATE: 201809
